FAERS Safety Report 7755487-3 (Version None)
Quarter: 2011Q3

REPORT INFORMATION
  Report Type: 
  Country: None (occurrence: None)
  Receive Date: 20110916
  Receipt Date: 20110912
  Transmission Date: 20111222
  Serious: Yes (Other)
  Sender: FDA-Public Use
  Company Number: US-PFIZER INC-2011216879

PATIENT

DRUGS (1)
  1. PREMARIN [Suspect]
     Indication: HORMONE REPLACEMENT THERAPY
     Dosage: 1.25 MG, UNK
     Dates: start: 19820101

REACTIONS (5)
  - CAROTID ARTERY THROMBOSIS [None]
  - BLINDNESS UNILATERAL [None]
  - INTERMITTENT CLAUDICATION [None]
  - CEREBROVASCULAR ACCIDENT [None]
  - AORTIC THROMBOSIS [None]
